FAERS Safety Report 8124655-3 (Version None)
Quarter: 2012Q1

REPORT INFORMATION
  Report Type: 
  Country: None (occurrence: None)
  Receive Date: 20120209
  Receipt Date: 20120209
  Transmission Date: 20120608
  Serious: Yes (Life-Threatening)
  Sender: FDA-Public Use
  Company Number: None

PATIENT
  Age: 41 Year
  Sex: Female
  Weight: 72.574 kg

DRUGS (1)
  1. NEXIUM [Suspect]
     Indication: GASTROOESOPHAGEAL REFLUX DISEASE
     Route: 048
     Dates: start: 20010701, end: 20020701

REACTIONS (6)
  - DEHYDRATION [None]
  - CLOSTRIDIAL INFECTION [None]
  - HYPOVOLAEMIC SHOCK [None]
  - IRRITABLE BOWEL SYNDROME [None]
  - HERNIA HIATUS REPAIR [None]
  - DIARRHOEA [None]
